FAERS Safety Report 6717505-0 (Version None)
Quarter: 2010Q2

REPORT INFORMATION
  Report Type: 
  Country: None (occurrence: None)
  Receive Date: 20100510
  Receipt Date: 20100503
  Transmission Date: 20101027
  Serious: Yes (Death)
  Sender: FDA-Public Use
  Company Number: DE-ROCHE-701552

PATIENT

DRUGS (1)
  1. CAPECITABINE [Suspect]
     Dosage: FOR 14 DAYS EVERY 21 DAYS, END OF TREATMENT AFTER 18 CYCLES
     Route: 065
     Dates: end: 20090417

REACTIONS (1)
  - MALIGNANT NEOPLASM PROGRESSION [None]
